FAERS Safety Report 24754919 (Version 4)
Quarter: 2025Q1

REPORT INFORMATION
  Report Type: Spontaneous
  Country: CN (occurrence: CN)
  Receive Date: 20241219
  Receipt Date: 20250307
  Transmission Date: 20250409
  Serious: Yes (Hospitalization, Other)
  Sender: NOVARTIS
  Company Number: CN-002147023-NVSC2024CN240320

PATIENT
  Age: 48 Year
  Sex: Male

DRUGS (1)
  1. COSENTYX [Suspect]
     Active Substance: SECUKINUMAB
     Indication: Psoriasis
     Dosage: UNK UNK, QW (2 INJECTIONS PER WEEK (300MG)), INJECT
     Route: 050
     Dates: start: 202410, end: 2024

REACTIONS (15)
  - Eczema [Recovering/Resolving]
  - Blister [Recovering/Resolving]
  - Rash pustular [Recovering/Resolving]
  - Blister rupture [Recovering/Resolving]
  - Oral mucosal blistering [Recovering/Resolving]
  - Feeding disorder [Recovering/Resolving]
  - Speech disorder [Recovering/Resolving]
  - Weight decreased [Recovered/Resolved]
  - Immune system disorder [Recovering/Resolving]
  - Psoriasis [Recovering/Resolving]
  - Purulence [Recovering/Resolving]
  - Tongue disorder [Recovering/Resolving]
  - Erythema [Recovering/Resolving]
  - Pruritus [Recovering/Resolving]
  - Pain in extremity [Unknown]

NARRATIVE: CASE EVENT DATE: 20240101
